FAERS Safety Report 6226053-6 (Version None)
Quarter: 2009Q2

REPORT INFORMATION
  Report Type: 
  Country: None (occurrence: None)
  Receive Date: 20090612
  Receipt Date: 20090505
  Transmission Date: 20091009
  Serious: No
  Sender: FDA-Public Use
  Company Number: US-BAYER-200919162NA

PATIENT
  Age: 79 Year
  Sex: Male

DRUGS (4)
  1. LEVITRA [Suspect]
     Indication: ERECTILE DYSFUNCTION
     Dosage: AS USED: 10 MG  UNIT DOSE: 10 MG
     Dates: start: 20040101, end: 20080823
  2. NORVASC [Concomitant]
  3. ASPIRIN [Concomitant]
  4. APAP TAB [Concomitant]

REACTIONS (4)
  - ERECTILE DYSFUNCTION [None]
  - FATIGUE [None]
  - INSOMNIA [None]
  - NAUSEA [None]
